FAERS Safety Report 15750257 (Version 1)
Quarter: 2018Q4

REPORT INFORMATION
  Report Type: Spontaneous
  Country: US (occurrence: US)
  Receive Date: 20181205
  Receipt Date: 20181205
  Transmission Date: 20190205
  Serious: No
  Sender: FDA-Public Use
  Company Number: None

PATIENT
  Age: 54 Year
  Sex: Female

DRUGS (19)
  1. FLONASE [Concomitant]
     Active Substance: FLUTICASONE PROPIONATE
  2. WARFARIN [Suspect]
     Active Substance: WARFARIN
  3. ADCIRCA [Suspect]
     Active Substance: TADALAFIL
  4. BUMEX [Concomitant]
     Active Substance: BUMETANIDE
  5. VITAMIN D3 [Suspect]
     Active Substance: CHOLECALCIFEROL
  6. LIPITOX [Concomitant]
  7. CARVADILOL [Concomitant]
  8. OMEPRAZOLE. [Concomitant]
     Active Substance: OMEPRAZOLE
  9. LETAIRIS [Suspect]
     Active Substance: AMBRISENTAN
     Route: 048
     Dates: start: 201110
  10. VENTOLIN HPA [Concomitant]
  11. MUCINCX [Concomitant]
  12. POTASSIUM CHLORIDE. [Concomitant]
     Active Substance: POTASSIUM CHLORIDE
  13. METFORMIN [Concomitant]
     Active Substance: METFORMIN HYDROCHLORIDE
  14. ALLEPURINOL [Concomitant]
  15. DOXYCYCLINIC [Concomitant]
  16. SPIRONOLAOTONE [Concomitant]
  17. NORTRIPTYLINE [Suspect]
     Active Substance: NORTRIPTYLINE
  18. ASCORBIC ACID. [Suspect]
     Active Substance: ASCORBIC ACID
  19. TYLENOL [Concomitant]
     Active Substance: ACETAMINOPHEN

REACTIONS (2)
  - Upper respiratory tract infection [None]
  - Acute sinusitis [None]

NARRATIVE: CASE EVENT DATE: 20181121
